FAERS Safety Report 8900822 (Version 3)
Quarter: 2012Q4

REPORT INFORMATION
  Report Type: 
  Country: US (occurrence: US)
  Receive Date: 20121109
  Receipt Date: 20121130
  Transmission Date: 20130627
  Serious: Yes (Other)
  Sender: FDA-Public Use
  Company Number: US-FRI-1000040157

PATIENT
  Age: 64 None
  Sex: Female
  Weight: 69.3 kg

DRUGS (9)
  1. BYSTOLIC [Suspect]
     Indication: HYPERTENSION
     Dosage: 2.5 mg
     Route: 048
     Dates: start: 201009, end: 20121030
  2. BYSTOLIC [Suspect]
     Indication: HEART RATE INCREASED
     Dosage: 2.5 mg
     Route: 048
     Dates: start: 201211
  3. ESTROGEN [Concomitant]
  4. PROGESTERONE [Concomitant]
  5. VITAMIN B [Concomitant]
  6. PANCREATIN [Concomitant]
     Indication: DYSPEPSIA
  7. LOVASTATIN [Concomitant]
     Dosage: 10 MG
  8. COZAAR [Concomitant]
     Dosage: 100 MG
  9. BENTYL [Concomitant]
     Dosage: 20 MG

REACTIONS (4)
  - Hyperthyroidism [Not Recovered/Not Resolved]
  - Heart rate increased [Unknown]
  - Palpitations [Not Recovered/Not Resolved]
  - Cough [Not Recovered/Not Resolved]
